FAERS Safety Report 12345921 (Version 3)
Quarter: 2016Q2

REPORT INFORMATION
  Report Type: Spontaneous
  Country: GB (occurrence: GB)
  Receive Date: 20160509
  Receipt Date: 20160623
  Transmission Date: 20160815
  Serious: Yes (Hospitalization)
  Sender: FDA-Public Use
  Company Number: GB-ROCHE-1753902

PATIENT
  Age: 16 Year
  Sex: Male
  Weight: 130 kg

DRUGS (1)
  1. SOMATROPIN [Suspect]
     Active Substance: SOMATROPIN
     Indication: PRADER-WILLI SYNDROME
     Route: 065

REACTIONS (4)
  - Acute kidney injury [Recovered/Resolved]
  - Off label use [Unknown]
  - Diabetic ketoacidosis [Recovered/Resolved]
  - Type 2 diabetes mellitus [Recovered/Resolved]
